FAERS Safety Report 10589769 (Version 1)
Quarter: 2014Q4

REPORT INFORMATION
  Report Type: Spontaneous
  Country: US (occurrence: None)
  Receive Date: 20141117
  Receipt Date: 20141117
  Transmission Date: 20150529
  Serious: No
  Sender: FDA-Public Use
  Company Number: None

PATIENT
  Age: 72 Year
  Sex: Female
  Weight: 86.18 kg

DRUGS (1)
  1. CRESTOR [Suspect]
     Active Substance: ROSUVASTATIN CALCIUM
     Indication: BLOOD CHOLESTEROL INCREASED
     Dosage: 5MG 1X DAY AT BEDTIME TAKEN BY MOUTH
     Route: 048
     Dates: start: 20140203, end: 20141116

REACTIONS (1)
  - Alopecia [None]

NARRATIVE: CASE EVENT DATE: 20140203
